FAERS Safety Report 9773700 (Version 2)
Quarter: 2013Q4

REPORT INFORMATION
  Report Type: Spontaneous
  Country: US (occurrence: US)
  Receive Date: 20131219
  Receipt Date: 20131219
  Transmission Date: 20140711
  Serious: No
  Sender: FDA-Public Use
  Company Number: US-MYLANLABS-2013S1011125

PATIENT
  Age: 3 Month
  Sex: Male

DRUGS (1)
  1. SOTRADECOL [Suspect]
     Route: 063

REACTIONS (2)
  - Exposure during breast feeding [Not Recovered/Not Resolved]
  - No adverse event [Not Recovered/Not Resolved]
